FAERS Safety Report 19661081 (Version 2)
Quarter: 2021Q3

REPORT INFORMATION
  Report Type: Spontaneous
  Country: BG (occurrence: BG)
  Receive Date: 20210805
  Receipt Date: 20210811
  Transmission Date: 20211014
  Serious: Yes (Other)
  Sender: FDA-Public Use
  Company Number: BG-009507513-2108BGR000166

PATIENT
  Age: 52 Year
  Sex: Male

DRUGS (2)
  1. KEYTRUDA [Suspect]
     Active Substance: PEMBROLIZUMAB
     Indication: SARCOMATOID CARCINOMA OF THE LUNG
     Dosage: UNK
     Dates: start: 20200707, end: 20201001
  2. KEYTRUDA [Suspect]
     Active Substance: PEMBROLIZUMAB
     Dosage: UNK
     Dates: start: 20210115, end: 20210228

REACTIONS (10)
  - Fatigue [Unknown]
  - Depression [Unknown]
  - Somnolence [Unknown]
  - COVID-19 [Unknown]
  - Constipation [Unknown]
  - Nodule [Unknown]
  - Disturbance in attention [Unknown]
  - Memory impairment [Unknown]
  - Blood thyroid stimulating hormone increased [Unknown]
  - Hepatotoxicity [Unknown]

NARRATIVE: CASE EVENT DATE: 2020
